FAERS Safety Report 8978363 (Version 1)
Quarter: 2012Q4

REPORT INFORMATION
  Report Type: 
  Country: NO (occurrence: NO)
  Receive Date: 20121221
  Receipt Date: 20121221
  Transmission Date: 20130627
  Serious: Yes (Life-Threatening)
  Sender: FDA-Public Use
  Company Number: NO-009507513-1212NOR008549

PATIENT
  Age: 30 Year
  Sex: Female
  Weight: 60 kg

DRUGS (1)
  1. TRILAFON DECANOATE [Suspect]
     Indication: SCHIZOPHRENIA
     Dosage: 1 ml, UNK
     Dates: start: 20030430, end: 20040215

REACTIONS (5)
  - Suicidal behaviour [Recovered/Resolved]
  - Apathy [Recovered/Resolved]
  - Akathisia [Recovered/Resolved]
  - Major depression [Recovered/Resolved]
  - Muscle rigidity [Recovered/Resolved]
